FAERS Safety Report 9375255 (Version 2)
Quarter: 2013Q3

REPORT INFORMATION
  Report Type: Spontaneous
  Country: VE (occurrence: VE)
  Receive Date: 20130628
  Receipt Date: 20130806
  Transmission Date: 20140515
  Serious: Yes (Other)
  Sender: FDA-Public Use
  Company Number: VE-PFIZER INC-2013187162

PATIENT
  Age: 62 Year
  Sex: Female

DRUGS (4)
  1. LIPITOR [Suspect]
     Indication: HYPERCHOLESTEROLAEMIA
     Dosage: 40 MG, 1X/DAY
     Route: 048
     Dates: start: 2011
  2. JANUMET [Concomitant]
     Indication: DIABETES MELLITUS
     Dosage: 50/500 MG,1X/DAY
     Route: 048
     Dates: start: 2003
  3. PLAVIX [Concomitant]
     Indication: HYPERTENSION
     Dosage: 75 MG, 1X/DAY
     Route: 048
     Dates: start: 2010
  4. DILATREND [Concomitant]
     Indication: HYPERTENSION
     Dosage: 12.5 MG, 1X/DAY
     Route: 048
     Dates: start: 2010

REACTIONS (4)
  - Myocardial infarction [Recovered/Resolved]
  - Myocardial infarction [Recovered/Resolved]
  - Coronary artery occlusion [Recovered/Resolved]
  - Arrhythmia [Recovered/Resolved]
